FAERS Safety Report 17347376 (Version 2)
Quarter: 2020Q1

REPORT INFORMATION
  Report Type: Spontaneous
  Country: PL (occurrence: PL)
  Receive Date: 20200130
  Receipt Date: 20200302
  Transmission Date: 20200409
  Serious: Yes (Other)
  Sender: FDA-Public Use
  Company Number: PL-SA-2020SA020070

PATIENT
  Age: 32 Year
  Sex: Female

DRUGS (1)
  1. INSULIN GLARGINE [Suspect]
     Active Substance: INSULIN GLARGINE
     Indication: TYPE 1 DIABETES MELLITUS

REACTIONS (10)
  - Hyperglycaemia [Recovering/Resolving]
  - Extra dose administered [Unknown]
  - Insulin C-peptide increased [Unknown]
  - Diabetic metabolic decompensation [Recovering/Resolving]
  - Condition aggravated [Recovering/Resolving]
  - Anaemia [Recovered/Resolved]
  - Hypoglycaemia [Recovered/Resolved]
  - Blood iron decreased [Recovered/Resolved]
  - Blood thyroid stimulating hormone increased [Unknown]
  - Lipoatrophy [Recovering/Resolving]
